FAERS Safety Report 8282247-X (Version None)
Quarter: 2012Q2

REPORT INFORMATION
  Report Type: 
  Country: None (occurrence: None)
  Receive Date: 20120413
  Receipt Date: 20120404
  Transmission Date: 20120825
  Serious: Yes (Hospitalization, Other)
  Sender: FDA-Public Use
  Company Number: US-BAYER-2012-033790

PATIENT
  Age: 23 Year
  Sex: Female
  Weight: 82.993 kg

DRUGS (11)
  1. ECHINACEA [Concomitant]
     Dosage: UNK
     Route: 048
     Dates: start: 20070101
  2. METHYLPREDNISOLONE [Concomitant]
     Dosage: UNK
     Route: 048
     Dates: start: 20080101
  3. ASCORBIC ACID [Concomitant]
     Dosage: UNK
     Route: 048
     Dates: start: 20050101
  4. YAZ [Suspect]
  5. ORTHO TRI-CYCLEN [Concomitant]
     Indication: CONTRACEPTION
     Dosage: UNK
     Route: 048
     Dates: start: 20100513
  6. NEXIUM [Concomitant]
     Dosage: 40 MG, UNK
     Route: 048
     Dates: start: 20100305
  7. OMEPRAZOLE [Concomitant]
     Indication: GASTROOESOPHAGEAL REFLUX DISEASE
     Dosage: UNK
     Route: 048
     Dates: start: 20100505, end: 20100513
  8. YAZ [Suspect]
     Indication: PREMENSTRUAL SYNDROME
     Dosage: UNK
     Dates: start: 20090629, end: 20100405
  9. PREDNISONE [Concomitant]
     Dosage: UNK
     Route: 048
     Dates: start: 20080101
  10. ALESSE [Concomitant]
     Dosage: UNK
  11. ADIPEX [Concomitant]
     Indication: WEIGHT DECREASED
     Dosage: 37.5 MG, UNK
     Route: 048
     Dates: start: 20100305

REACTIONS (7)
  - DIARRHOEA [None]
  - CHOLELITHIASIS [None]
  - GASTRODUODENITIS [None]
  - NAUSEA [None]
  - BILIARY DYSKINESIA [None]
  - ABDOMINAL PAIN [None]
  - CHOLECYSTITIS CHRONIC [None]
